FAERS Safety Report 15550163 (Version 2)
Quarter: 2018Q4

REPORT INFORMATION
  Report Type: Spontaneous
  Country: US (occurrence: US)
  Receive Date: 20181025
  Receipt Date: 20181116
  Transmission Date: 20190205
  Serious: No
  Sender: FDA-Public Use
  Company Number: US-BEH-2018096028

PATIENT
  Age: 2 Month
  Sex: Male

DRUGS (1)
  1. HIZENTRA [Suspect]
     Active Substance: HUMAN IMMUNOGLOBULIN G
     Indication: PRODUCT USED FOR UNKNOWN INDICATION
     Route: 065

REACTIONS (5)
  - Infusion site calcification [Unknown]
  - Injection site mass [Recovered/Resolved]
  - Infusion site infection [Recovered/Resolved]
  - Infusion site nodule [Unknown]
  - Infusion site erythema [Recovered/Resolved]
